FAERS Safety Report 9372800 (Version 1)
Quarter: 2013Q2

REPORT INFORMATION
  Report Type: Spontaneous
  Country: DE (occurrence: None)
  Receive Date: 20130606
  Receipt Date: 20130606
  Transmission Date: 20140414
  Serious: Yes (Hospitalization)
  Sender: FDA-Public Use
  Company Number: 2013036289

PATIENT
  Age: 11 Year
  Sex: Male

DRUGS (1)
  1. HAEMATE P [Suspect]
     Indication: VON WILLEBRAND^S DISEASE
     Route: 042

REACTIONS (6)
  - Craniocerebral injury [None]
  - Hand fracture [None]
  - Contusion [None]
  - Excoriation [None]
  - Face injury [None]
  - Road traffic accident [None]
